FAERS Safety Report 4512347-9 (Version None)
Quarter: 2004Q4

REPORT INFORMATION
  Report Type: 
  Country: None (occurrence: None)
  Receive Date: 20041123
  Receipt Date: 20041108
  Transmission Date: 20050328
  Serious: Yes (Death, Hospitalization)
  Sender: FDA-Public Use
  Company Number: 2003CG00954

PATIENT
  Age: 53 Year
  Sex: Male

DRUGS (7)
  1. TENORMIN [Suspect]
     Indication: HYPERTENSION
     Dosage: 100 MG QD PO
     Route: 048
     Dates: start: 20000615, end: 20030610
  2. ISOPTIN [Suspect]
     Dosage: 240 MG QD PO
     Route: 048
     Dates: start: 20000615, end: 20030610
  3. GLUCOPHAGE [Suspect]
     Indication: DIABETES MELLITUS
     Dosage: 2550 MG QD PO
     Route: 048
     Dates: start: 20000615, end: 20030610
  4. COVERSYL [Suspect]
     Dates: start: 20000615, end: 20030610
  5. PLAVIX [Concomitant]
  6. LEXOMIL [Concomitant]
  7. TAHOR [Concomitant]

REACTIONS (12)
  - BLOOD POTASSIUM INCREASED [None]
  - CARDIO-RESPIRATORY ARREST [None]
  - DEHYDRATION [None]
  - FEBRILE INFECTION [None]
  - HEADACHE [None]
  - HYPERGLYCAEMIA [None]
  - LACTIC ACIDOSIS [None]
  - MENINGEAL DISORDER [None]
  - OVERDOSE [None]
  - RENAL FAILURE ACUTE [None]
  - SINUS BRADYCARDIA [None]
  - VOMITING [None]
